FAERS Safety Report 17745623 (Version 1)
Quarter: 2020Q2

REPORT INFORMATION
  Report Type: Spontaneous
  Country: US (occurrence: US)
  Receive Date: 20200505
  Receipt Date: 20200505
  Transmission Date: 20200714
  Serious: Yes (Other)
  Sender: FDA-Public Use
  Company Number: None

PATIENT
  Age: 55 Year
  Sex: Female
  Weight: 66 kg

DRUGS (1)
  1. DEXAMETHASONE/NEOMYCIN/POLYMYXIN B (DEXAMETHASONE 0.1%/N-MYCIN 3.5MG/P [Suspect]
     Active Substance: DEXAMETHASONE\NEOMYCIN\POLYMYXIN B
     Indication: SURGERY
     Dosage: ?          OTHER ROUTE:EYE?
     Dates: start: 20191210, end: 20200320

REACTIONS (3)
  - Swelling face [None]
  - Drug hypersensitivity [None]
  - Cellulitis [None]

NARRATIVE: CASE EVENT DATE: 20200319
